FAERS Safety Report 10234216 (Version 1)
Quarter: 2014Q2

REPORT INFORMATION
  Report Type: Spontaneous
  Country: US (occurrence: US)
  Receive Date: 20140612
  Receipt Date: 20140612
  Transmission Date: 20141212
  Serious: Yes (Hospitalization)
  Sender: FDA-Public Use
  Company Number: US-LUNDBECK-DKLU1100860

PATIENT
  Age: 11 Month
  Sex: Female

DRUGS (1)
  1. SABRIL (FOR ORAL SOLUTION) [Suspect]
     Indication: INFANTILE SPASMS
     Route: 048
     Dates: start: 20140421

REACTIONS (4)
  - Staring [Unknown]
  - Eye movement disorder [Unknown]
  - Visual impairment [Unknown]
  - Tremor [Unknown]
